FAERS Safety Report 8983325 (Version 7)
Quarter: 2013Q3

REPORT INFORMATION
  Report Type: Report from Study
  Country: US (occurrence: US)
  Receive Date: 20121221
  Receipt Date: 20130705
  Transmission Date: 20140515
  Serious: Yes (Other)
  Sender: FDA-Public Use
  Company Number: US-US-EMD SERONO, INC.-7183190

PATIENT
  Age: 57 Year
  Sex: Female
  Weight: 61 kg

DRUGS (4)
  1. REBIF [Suspect]
     Indication: MULTIPLE SCLEROSIS
     Route: 058
     Dates: start: 20091130
  2. PREDNISONE [Concomitant]
     Indication: MULTIPLE SCLEROSIS
     Dates: start: 2008, end: 201211
  3. PREDNISONE [Concomitant]
  4. ZOLOFT [Concomitant]
     Indication: PRODUCT USED FOR UNKNOWN INDICATION

REACTIONS (6)
  - Fall [Recovering/Resolving]
  - Convulsion [Recovering/Resolving]
  - Urinary tract infection [Recovering/Resolving]
  - Tremor [Recovering/Resolving]
  - Injection site pain [Unknown]
  - Ankle fracture [Recovering/Resolving]
